FAERS Safety Report 7732792-8 (Version None)
Quarter: 2011Q3

REPORT INFORMATION
  Report Type: 
  Country: None (occurrence: None)
  Receive Date: 20110901
  Receipt Date: 20110901
  Transmission Date: 20111222
  Serious: No
  Sender: FDA-Public Use
  Company Number: None

PATIENT
  Sex: Female

DRUGS (2)
  1. METAXALONE [Suspect]
     Indication: PAIN
     Dosage: METAXALONE 800MG QPM PO
     Route: 048
     Dates: start: 20110815, end: 20110901
  2. TIKOSYN [Suspect]
     Indication: ATRIAL FIBRILLATION
     Dosage: TIKOSYN 0.25MG BID PO
     Route: 048
     Dates: start: 20110528

REACTIONS (2)
  - HEART RATE DECREASED [None]
  - FATIGUE [None]
